FAERS Safety Report 16592104 (Version 1)
Quarter: 2019Q3

REPORT INFORMATION
  Report Type: Spontaneous
  Country: CA (occurrence: CA)
  Receive Date: 20190718
  Receipt Date: 20190718
  Transmission Date: 20191004
  Serious: Yes (Life-Threatening, Hospitalization)
  Sender: FDA-Public Use
  Company Number: CA-UCBSA-2019029309

PATIENT
  Age: 65 Year
  Sex: Male
  Weight: 80 kg

DRUGS (6)
  1. NEUPRO [Suspect]
     Active Substance: ROTIGOTINE
     Indication: SLEEP DISORDER
     Dosage: 4 MILLIGRAM, ONCE DAILY (QD)
     Route: 062
  2. SINEMET [Concomitant]
     Active Substance: CARBIDOPA\LEVODOPA
     Indication: PRODUCT USED FOR UNKNOWN INDICATION
  3. NEUPRO [Suspect]
     Active Substance: ROTIGOTINE
     Indication: OFF LABEL USE
  4. NEUPRO [Suspect]
     Active Substance: ROTIGOTINE
     Indication: PARKINSON^S DISEASE
  5. ENTACAPONE. [Concomitant]
     Active Substance: ENTACAPONE
     Indication: PRODUCT USED FOR UNKNOWN INDICATION
  6. LEVODOPA-CARBIDOPA [Concomitant]
     Active Substance: CARBIDOPA\LEVODOPA
     Indication: PRODUCT USED FOR UNKNOWN INDICATION

REACTIONS (9)
  - Abnormal behaviour [Recovering/Resolving]
  - Hallucination [Recovering/Resolving]
  - Suicidal ideation [Recovering/Resolving]
  - Paranoia [Recovering/Resolving]
  - Off label use [Unknown]
  - Mental disorder [Recovering/Resolving]
  - Delirium [Recovering/Resolving]
  - Agitation [Recovering/Resolving]
  - Confusional state [Recovering/Resolving]
